FAERS Safety Report 7844864-8 (Version None)
Quarter: 2011Q4

REPORT INFORMATION
  Report Type: 
  Country: None (occurrence: None)
  Receive Date: 20111025
  Receipt Date: 20111017
  Transmission Date: 20120403
  Serious: Yes (Hospitalization)
  Sender: FDA-Public Use
  Company Number: JP-GLAXOSMITHKLINE-B0757135A

PATIENT
  Age: 5 Decade
  Sex: Male

DRUGS (2)
  1. LITHIUM CARBONATE [Concomitant]
     Indication: BIPOLAR I DISORDER
     Route: 048
  2. LAMICTAL [Suspect]
     Indication: BIPOLAR I DISORDER
     Dosage: 200MG PER DAY
     Route: 048

REACTIONS (1)
  - OVERDOSE [None]
